FAERS Safety Report 13800481 (Version 1)
Quarter: 2017Q3

REPORT INFORMATION
  Report Type: Spontaneous
  Country: US (occurrence: US)
  Receive Date: 20170727
  Receipt Date: 20170727
  Transmission Date: 20171127
  Serious: No
  Sender: FDA-Public Use
  Company Number: US-MYLANLABS-2016M1031995

PATIENT
  Sex: Female

DRUGS (1)
  1. LEVOTHYROXINE. [Suspect]
     Active Substance: LEVOTHYROXINE
     Dosage: UNK

REACTIONS (4)
  - Dry skin [Recovered/Resolved]
  - Thyroid hormones decreased [Recovered/Resolved]
  - Gastrointestinal motility disorder [Recovered/Resolved]
  - Drug effect decreased [Recovered/Resolved]
